FAERS Safety Report 8756253 (Version 3)
Quarter: 2012Q4

REPORT INFORMATION
  Report Type: 
  Country: JP (occurrence: JP)
  Receive Date: 20120828
  Receipt Date: 20120920
  Transmission Date: 20130627
  Serious: Yes (Hospitalization)
  Sender: FDA-Public Use
  Company Number: PHHY2012JP073634

PATIENT
  Age: 81 Year
  Sex: Male

DRUGS (10)
  1. RIVASTIGMINE [Suspect]
     Indication: DEMENTIA ALZHEIMER^S TYPE
     Route: 062
  2. RIVASTIGMINE [Suspect]
     Dosage: 13.5 mg, /24 Hrs
     Route: 062
     Dates: start: 201206
  3. RIVASTIGMINE [Suspect]
     Route: 062
     Dates: start: 20120822
  4. BAYASPIRIN [Concomitant]
  5. ITOROL [Concomitant]
  6. MEXITIL [Concomitant]
  7. LASIX [Concomitant]
  8. MEVALOTIN [Concomitant]
  9. DIART [Concomitant]
  10. VASOLAN [Concomitant]

REACTIONS (7)
  - Gastroenteritis [Recovered/Resolved]
  - Diarrhoea [Recovering/Resolving]
  - Nausea [Recovered/Resolved]
  - Vomiting [Recovered/Resolved]
  - Gait disturbance [Recovering/Resolving]
  - Dehydration [Recovering/Resolving]
  - Fatigue [Unknown]
